FAERS Safety Report 6451126-2 (Version None)
Quarter: 2009Q4

REPORT INFORMATION
  Report Type: 
  Country: None (occurrence: None)
  Receive Date: 20091123
  Receipt Date: 20091112
  Transmission Date: 20100525
  Serious: Yes (Other)
  Sender: FDA-Public Use
  Company Number: US-PFIZER INC-2009298121

PATIENT
  Sex: Female

DRUGS (2)
  1. LIPITOR [Suspect]
  2. ZEGERID [Suspect]

REACTIONS (2)
  - ARTHRALGIA [None]
  - CARDIAC DISORDER [None]
